FAERS Safety Report 9467998 (Version 1)
Quarter: 2013Q3

REPORT INFORMATION
  Report Type: Spontaneous
  Country: US (occurrence: US)
  Receive Date: 20130821
  Receipt Date: 20130821
  Transmission Date: 20140515
  Serious: Yes (Other)
  Sender: FDA-Public Use
  Company Number: US-BAYER-2013-099496

PATIENT
  Age: 18 Year
  Sex: Female

DRUGS (1)
  1. MAGNEVIST [Suspect]

REACTIONS (7)
  - Urticaria [None]
  - Erythema [None]
  - Pruritus [None]
  - Dyspnoea [None]
  - Oropharyngeal discomfort [None]
  - Eye swelling [None]
  - Swelling face [None]
